FAERS Safety Report 5932471-3 (Version None)
Quarter: 2008Q4

REPORT INFORMATION
  Report Type: 
  Country: None (occurrence: None)
  Receive Date: 20081028
  Receipt Date: 20081024
  Transmission Date: 20090506
  Serious: Yes (Death, Hospitalization)
  Sender: FDA-Public Use
  Company Number: US-ROCHE-581228

PATIENT
  Sex: Male

DRUGS (2)
  1. PEG-INTERFERON A-2A (RO 25-8310) [Suspect]
     Dosage: PRE FILLED SYRINGE
     Route: 065
     Dates: start: 20080601, end: 20080809
  2. RIBAVIRIN [Suspect]
     Route: 065
     Dates: start: 20080601, end: 20080809

REACTIONS (2)
  - CARDIAC VALVE RUPTURE [None]
  - INFECTION [None]
